FAERS Safety Report 18058972 (Version 2)
Quarter: 2020Q3

REPORT INFORMATION
  Report Type: Spontaneous
  Country: US (occurrence: US)
  Receive Date: 20200723
  Receipt Date: 20200812
  Transmission Date: 20201103
  Serious: No
  Sender: FDA-Public Use
  Company Number: US-SA-2020SA186659

PATIENT

DRUGS (3)
  1. KEVZARA [Suspect]
     Active Substance: SARILUMAB
     Indication: RHEUMATOID ARTHRITIS
     Dosage: 200 MG, QOW
     Route: 058
     Dates: start: 20200626, end: 2020
  2. OLUMIANT [Suspect]
     Active Substance: BARICITINIB
  3. OLUMIANT [Suspect]
     Active Substance: BARICITINIB
     Dosage: STOPPED FOR 3 WEEKS

REACTIONS (3)
  - Illness [Unknown]
  - Arthralgia [Unknown]
  - Infection [Unknown]

NARRATIVE: CASE EVENT DATE: 2020
